FAERS Safety Report 9154917 (Version 2)
Quarter: 2013Q1

REPORT INFORMATION
  Report Type: Spontaneous
  Country: TR (occurrence: TR)
  Receive Date: 20130311
  Receipt Date: 20130319
  Transmission Date: 20140127
  Serious: Yes (Other)
  Sender: FDA-Public Use
  Company Number: TR-PFIZER INC-2013078833

PATIENT
  Age: 77 Year
  Sex: Female

DRUGS (1)
  1. TYGACIL [Suspect]

REACTIONS (1)
  - Pulmonary embolism [Unknown]
